FAERS Safety Report 17298838 (Version 1)
Quarter: 2020Q1

REPORT INFORMATION
  Report Type: Spontaneous
  Country: US (occurrence: US)
  Receive Date: 20200122
  Receipt Date: 20200122
  Transmission Date: 20200409
  Serious: No
  Sender: FDA-Public Use
  Company Number: US-LEADING PHARMA LLC-US-2019LEASPO00032

PATIENT
  Sex: Female

DRUGS (1)
  1. LORAZEPAM TABLETS USP [Suspect]
     Active Substance: LORAZEPAM

REACTIONS (2)
  - Dysstasia [Unknown]
  - Oropharyngeal pain [Unknown]
